FAERS Safety Report 14607466 (Version 1)
Quarter: 2018Q1

REPORT INFORMATION
  Report Type: Spontaneous
  Country: GB (occurrence: GB)
  Receive Date: 20180307
  Receipt Date: 20180307
  Transmission Date: 20180509
  Serious: Yes (Death, Hospitalization)
  Sender: FDA-Public Use
  Company Number: GB-ASTRAZENECA-2018SE25595

PATIENT
  Age: 65 Year
  Sex: Female
  Weight: 45 kg

DRUGS (10)
  1. TRAMADOL. [Concomitant]
     Active Substance: TRAMADOL
  2. LANSOPRAZOLE. [Concomitant]
     Active Substance: LANSOPRAZOLE
  3. CARMELLOSE [Concomitant]
  4. LATANOPROST. [Concomitant]
     Active Substance: LATANOPROST
  5. PARACETAMOL [Concomitant]
     Active Substance: ACETAMINOPHEN
  6. CHLORAMPHENICOL [Concomitant]
     Active Substance: CHLORAMPHENICOL
  7. OSIMERTINIB. [Suspect]
     Active Substance: OSIMERTINIB
     Indication: LUNG ADENOCARCINOMA STAGE IV
     Dosage: 80.0MG UNKNOWN
     Route: 048
  8. PREDNISOLONE ACETATE. [Concomitant]
     Active Substance: PREDNISOLONE ACETATE
  9. LOPERAMIDE [Concomitant]
     Active Substance: LOPERAMIDE
  10. HYDROXOCOBALAMIN [Concomitant]
     Active Substance: HYDROXOCOBALAMIN

REACTIONS (2)
  - Electrocardiogram QT prolonged [Fatal]
  - Ventricular fibrillation [Fatal]

NARRATIVE: CASE EVENT DATE: 20171120
